FAERS Safety Report 21898638 (Version 1)
Quarter: 2023Q1

REPORT INFORMATION
  Report Type: Report from Study
  Country: CA (occurrence: CA)
  Receive Date: 20230123
  Receipt Date: 20230123
  Transmission Date: 20230418
  Serious: Yes (Hospitalization)
  Sender: FDA-Public Use
  Company Number: CA-ABBVIE-4162603

PATIENT
  Sex: Female

DRUGS (1)
  1. HUMIRA [Suspect]
     Active Substance: ADALIMUMAB
     Indication: Crohn^s disease
     Route: 058
     Dates: start: 20090710

REACTIONS (8)
  - Vaginal fistula [Unknown]
  - Ovarian cyst [Unknown]
  - Tubo-ovarian abscess [Unknown]
  - Arthritis [Unknown]
  - Episcleritis [Unknown]
  - Anal fissure haemorrhage [Unknown]
  - Anal fistula [Unknown]
  - Breast abscess [Recovered/Resolved]

NARRATIVE: CASE EVENT DATE: 20220101
